FAERS Safety Report 12378924 (Version 3)
Quarter: 2016Q3

REPORT INFORMATION
  Report Type: Report from Study
  Country: GB (occurrence: GB)
  Receive Date: 20160517
  Receipt Date: 20160727
  Transmission Date: 20161109
  Serious: Yes (Hospitalization, Other)
  Sender: FDA-Public Use
  Company Number: GB-JNJFOC-20160420790

PATIENT
  Age: 50 Year
  Sex: Female

DRUGS (44)
  1. STELARA [Suspect]
     Active Substance: USTEKINUMAB
     Indication: PSORIASIS
     Route: 058
     Dates: start: 20131115
  2. HYDROXYZINE [Concomitant]
     Active Substance: HYDROXYZINE\HYDROXYZINE HYDROCHLORIDE
     Indication: PRURITUS
     Route: 048
  3. LOTRIDERM [Concomitant]
     Active Substance: BETAMETHASONE DIPROPIONATE\CLOTRIMAZOLE
     Dosage: EVERY DAY THINNLY FOR 10 DAYS IF REQUIRED
     Route: 061
  4. BETAMETHASONE DIPROPIONATE. [Concomitant]
     Active Substance: BETAMETHASONE DIPROPIONATE
     Route: 061
  5. CLOTRIMAZOLE. [Concomitant]
     Active Substance: CLOTRIMAZOLE
     Route: 061
  6. MIRTAZAPINE. [Concomitant]
     Active Substance: MIRTAZAPINE
     Dosage: ONE TABLET EVERY EVENING
     Route: 048
  7. QUETIAPINE. [Concomitant]
     Active Substance: QUETIAPINE
     Dosage: 50MG AT NIGHT
     Route: 048
  8. SALAMOL [Concomitant]
     Active Substance: ALBUTEROL
     Dosage: INHALE TWO PUFFS 4 TO 6 HOURLY WHEN REQUIRED
     Route: 055
  9. HUMALOG [Concomitant]
     Active Substance: INSULIN LISPRO
     Dosage: 100 UNITS/ML
     Route: 065
  10. MOMETASONE [Concomitant]
     Active Substance: MOMETASONE
     Indication: PSORIASIS
     Dosage: APPLY SPARINGLY ONCE A DAY TO PSORIATIC PATCHES
     Route: 061
  11. MEBEVERINE [Concomitant]
     Active Substance: MEBEVERINE
     Dosage: BEFORE FOOD
     Route: 048
  12. FLUCONAZOLE. [Concomitant]
     Active Substance: FLUCONAZOLE
     Route: 048
  13. CANESTEN [Concomitant]
     Active Substance: CLOTRIMAZOLE
     Route: 065
  14. INTAL [Concomitant]
     Active Substance: CROMOLYN SODIUM
     Dosage: ONE OR TWO DROPS TO EACH EYE FOUR TIMES A DAV
     Route: 047
  15. LOPERAMIDE [Concomitant]
     Active Substance: LOPERAMIDE
     Indication: DIARRHOEA
     Dosage: TWO CAPSULES IMMEDIATELY THEN ONE
     Route: 048
  16. COCOIS [Concomitant]
     Route: 061
  17. POLYTAR [Concomitant]
     Route: 065
  18. DOXYCYCLINE. [Concomitant]
     Active Substance: DOXYCYCLINE
     Dosage: 2 ON DAY 1 THEN ONE EVERY DAY WITH EVENINQ MEALS
     Route: 048
  19. CLOBETASONE BUTYRATE [Concomitant]
     Active Substance: CLOBETASONE BUTYRATE
     Dosage: TWICE DAILY FO 2-3 WEEKS THEN IN SHORT SHARP BURSTS AS NEEDED
     Route: 061
  20. CLOTRIMAZOLE. [Concomitant]
     Active Substance: CLOTRIMAZOLE
     Route: 061
  21. CAPASAL [Concomitant]
     Route: 061
  22. NITROFURANTOIN. [Concomitant]
     Active Substance: NITROFURANTOIN
     Route: 048
  23. FUCIDIN [Concomitant]
     Active Substance: FUSIDIC ACID
     Route: 061
  24. KETOCONAZOLE. [Concomitant]
     Active Substance: KETOCONAZOLE
     Route: 061
  25. NYSTATIN. [Concomitant]
     Active Substance: NYSTATIN
     Dosage: TWICE DAILY FO 2-3 WEEKS THEN IN SHORT SHARP BURSTS AS NEEDED
     Route: 061
  26. LANSOPRAZOLE. [Concomitant]
     Active Substance: LANSOPRAZOLE
     Indication: GASTROINTESTINAL DISORDER THERAPY
     Route: 048
  27. CALCIPOTRIOL [Concomitant]
     Active Substance: CALCIPOTRIENE
     Route: 061
  28. METFORMIN [Concomitant]
     Active Substance: METFORMIN HYDROCHLORIDE
     Indication: BLOOD GLUCOSE ABNORMAL
     Route: 048
  29. OXYTETRACYCLINE [Concomitant]
     Active Substance: OXYTETRACYCLINE
     Dosage: TWICE DAILY FO 2-3 WEEKS THEN IN SHORT SHARP BURSTS AS NEEDED
     Route: 061
  30. FOSTAIR [Concomitant]
     Active Substance: BECLOMETHASONE\FORMOTEROL
     Dosage: 2 PUFFS TWICE A DAY
     Route: 055
  31. TIOTROPIUM BROMIDE [Concomitant]
     Active Substance: TIOTROPIUM BROMIDE
     Dosage: INHALE ONE CAPSULE DAILY AT THE SAME TIME EACH DAY
     Route: 055
  32. DIPROBASE [Concomitant]
     Active Substance: CHLOROCRESOL
     Route: 061
  33. BUCLIZINE W/CODEINE/PARACETAMOL [Concomitant]
     Route: 048
  34. STELARA [Suspect]
     Active Substance: USTEKINUMAB
     Indication: PSORIASIS
     Route: 058
     Dates: start: 201203
  35. ATORVASTATIN [Concomitant]
     Active Substance: ATORVASTATIN
     Indication: BLOOD CHOLESTEROL INCREASED
     Route: 048
  36. OXYCONTIN [Concomitant]
     Active Substance: OXYCODONE HYDROCHLORIDE
     Indication: PAIN
     Route: 048
  37. PARACETAMOL [Concomitant]
     Active Substance: ACETAMINOPHEN
     Indication: PAIN
     Dosage: TWO TABS FOUR TIMES A DAY TO RELIEVE PAIN
     Route: 048
  38. CLARITHROMYCIN. [Concomitant]
     Active Substance: CLARITHROMYCIN
     Dosage: ONE TABLET EVERY EVENING
     Route: 048
  39. NAPROXEN. [Concomitant]
     Active Substance: NAPROXEN
     Dosage: WITH MEALS
     Route: 048
  40. SEBCO [Concomitant]
     Route: 061
  41. BECLOMETASONE [Concomitant]
     Active Substance: BECLOMETHASONE DIPROPIONATE
     Dosage: SPRAY INTO EACH NOSTRIL TWICE A DAY
     Route: 045
  42. EUMOVATE [Concomitant]
     Active Substance: CLOBETASONE BUTYRATE
     Dosage: TO BE APPLIED SPARINGLY ONCE TO TWICE DAILY BEHIND YOUR EARS AND FORHEAD FOR UPTO FOUR WEEKS
     Route: 061
  43. GABAPENTIN. [Concomitant]
     Active Substance: GABAPENTIN
     Dosage: TAKE TWO TABLETS IN THE MORNING AND TWO IN THE AFTERNOON, TAKE THREE TABLETS AT NIGHT
     Route: 048
  44. BACLOFEN. [Concomitant]
     Active Substance: BACLOFEN
     Route: 048

REACTIONS (5)
  - Lower respiratory tract infection [Unknown]
  - Nephrolithiasis [Unknown]
  - Malaise [Unknown]
  - Inappropriate schedule of drug administration [Unknown]
  - Psoriasis [Unknown]

NARRATIVE: CASE EVENT DATE: 20151203
